FAERS Safety Report 23926998 (Version 1)
Quarter: 2024Q2

REPORT INFORMATION
  Report Type: Spontaneous
  Country: US (occurrence: US)
  Receive Date: 20240531
  Receipt Date: 20240531
  Transmission Date: 20240715
  Serious: No
  Sender: FDA-Public Use
  Company Number: US-RADIUS HEALTH, INC.-2023US006183

PATIENT
  Age: 54 Year
  Sex: Female

DRUGS (1)
  1. TYMLOS [Suspect]
     Active Substance: ABALOPARATIDE
     Indication: Osteoporosis
     Dosage: 80 MICROGRAM, QD
     Route: 058
     Dates: start: 20231127, end: 20231209

REACTIONS (10)
  - Lacrimation increased [Recovering/Resolving]
  - Eye swelling [Recovering/Resolving]
  - Migraine [Unknown]
  - Blepharospasm [Recovered/Resolved]
  - Ocular hyperaemia [Recovering/Resolving]
  - Sneezing [Recovering/Resolving]
  - Headache [Recovered/Resolved]
  - Pain [Recovered/Resolved]
  - Insomnia [Recovered/Resolved]
  - Product dose omission issue [Unknown]

NARRATIVE: CASE EVENT DATE: 20231101
